FAERS Safety Report 6212746-3 (Version None)
Quarter: 2009Q2

REPORT INFORMATION
  Report Type: 
  Country: None (occurrence: None)
  Receive Date: 20090603
  Receipt Date: 20090528
  Transmission Date: 20091009
  Serious: Yes (Death)
  Sender: FDA-Public Use
  Company Number: US-BRISTOL-MYERS SQUIBB COMPANY-14642623

PATIENT
  Age: 65 Year
  Sex: Female
  Weight: 60 kg

DRUGS (29)
  1. CETUXIMAB [Suspect]
     Indication: NON-SMALL CELL LUNG CANCER METASTATIC
     Route: 042
     Dates: start: 20090513, end: 20090513
  2. PACLITAXEL [Suspect]
     Indication: NON-SMALL CELL LUNG CANCER METASTATIC
     Route: 042
     Dates: start: 20090513, end: 20090513
  3. CARBOPLATIN [Suspect]
     Indication: NON-SMALL CELL LUNG CANCER METASTATIC
     Route: 042
     Dates: start: 20090513, end: 20090513
  4. LOVASTATIN [Concomitant]
     Route: 048
  5. LITHIUM CARBONATE [Concomitant]
     Route: 048
  6. THEOPHYLLINE [Concomitant]
     Route: 048
  7. ASPIRIN [Concomitant]
     Route: 048
  8. LORAZEPAM [Concomitant]
     Indication: NAUSEA
     Route: 048
     Dates: start: 20090513
  9. VALIUM [Concomitant]
     Route: 048
  10. PREDNISONE [Concomitant]
     Route: 048
  11. RANITIDINE [Concomitant]
     Route: 048
  12. ADVAIR HFA [Concomitant]
     Dosage: 1 DOSAGE FORM = 250/50 MG 2 PUFFS
     Route: 048
  13. SPIRIVA [Concomitant]
     Dosage: 1 DOSAGE FORM = 1 PUFF
     Route: 048
  14. COLACE [Concomitant]
     Route: 048
  15. IMODIUM [Concomitant]
     Route: 048
  16. ALBUTEROL [Concomitant]
     Dosage: 1 DOSAGEFORM = 2 PUFFS Q 4 HRS
     Route: 048
  17. SYNTHROID [Concomitant]
     Route: 048
  18. AMLODIPINE [Concomitant]
     Route: 048
  19. OXYGEN [Concomitant]
     Dosage: 1 DOSAGE FORM = 2-3 LITERS PER NASAL CANNULA, NASAL
     Route: 045
  20. MIRALAX [Concomitant]
     Indication: CONSTIPATION
     Route: 048
  21. DOVONEX [Concomitant]
     Indication: PSORIASIS
     Route: 061
  22. PRILOSEC [Concomitant]
     Indication: ABDOMINAL DISCOMFORT
     Dates: start: 20090501
  23. NEULASTA [Concomitant]
     Indication: PROPHYLAXIS
     Route: 058
     Dates: start: 20090515, end: 20090515
  24. TYLENOL (CAPLET) [Concomitant]
     Route: 048
     Dates: start: 20090513
  25. BENADRYL [Concomitant]
     Route: 042
     Dates: start: 20090513
  26. PEPCID [Concomitant]
     Route: 042
     Dates: start: 20090513
  27. ALOXI [Concomitant]
     Route: 042
     Dates: start: 20090513
  28. SODIUM CHLORIDE [Concomitant]
     Dosage: 1 DOSAGE FORM = 100 ML,500ML,150ML,100ML
     Dates: start: 20090513, end: 20090513
  29. DEXAMETHASONE [Concomitant]
     Route: 042
     Dates: start: 20090513, end: 20090513

REACTIONS (1)
  - DEATH [None]
